FAERS Safety Report 21534172 (Version 6)
Quarter: 2022Q4

REPORT INFORMATION
  Report Type: Other
  Country: US (occurrence: US)
  Receive Date: 20221101
  Receipt Date: 20221221
  Transmission Date: 20230112
  Serious: Yes (Hospitalization)
  Sender: FDA-Public Use
  Company Number: US-GBT-017535

PATIENT
  Sex: Male
  Weight: 68.946 kg

DRUGS (1)
  1. OXBRYTA [Suspect]
     Active Substance: VOXELOTOR
     Indication: Product used for unknown indication
     Route: 048
     Dates: start: 2022

REACTIONS (6)
  - Sickle cell anaemia with crisis [Unknown]
  - Therapy interrupted [Unknown]
  - Diarrhoea [Recovering/Resolving]
  - Hypervolaemia [Unknown]
  - Sickle cell anaemia with crisis [Unknown]
  - Illness [Unknown]

NARRATIVE: CASE EVENT DATE: 20220101
